FAERS Safety Report 9423507 (Version 4)
Quarter: 2013Q3

REPORT INFORMATION
  Report Type: Spontaneous
  Country: JP (occurrence: JP)
  Receive Date: 20130726
  Receipt Date: 20130903
  Transmission Date: 20140515
  Serious: Yes (Hospitalization)
  Sender: FDA-Public Use
  Company Number: JP-B.I. PHARMACEUTICALS,INC./RIDGEFIELD-2013-BI-21618JT

PATIENT
  Age: 84 Year
  Sex: Female

DRUGS (40)
  1. PRADAXA [Suspect]
     Indication: DEEP VEIN THROMBOSIS
     Dosage: 150 MG
     Route: 048
     Dates: start: 20130625, end: 20130709
  2. CELECOX [Suspect]
     Indication: PAIN
     Dosage: 200 MG
     Route: 048
     Dates: end: 20130702
  3. CALONAL [Suspect]
     Indication: PAIN
     Dosage: 600 MG
     Route: 048
     Dates: start: 20130702, end: 20130708
  4. PRAZAXA(DABIGATRAN ETEXILATE METHANESULFONATE) [Concomitant]
     Indication: DEEP VEIN THROMBOSIS
     Dosage: 150 MG
     Route: 048
     Dates: start: 20130625, end: 20130709
  5. AMLODIN OD (AMLODIPINE BESILATE) [Concomitant]
     Indication: HYPERTENSION
     Dosage: 5 MG
     Route: 048
     Dates: end: 20130702
  6. GASRICK D (FAMOTIDINE) [Concomitant]
     Indication: GASTRITIS
     Dosage: 20 MG
     Route: 048
     Dates: end: 20130702
  7. SUNRYTHM (PILSICAINIDE HYDROCHLORIDE HYDRATE) [Concomitant]
     Indication: ATRIAL FIBRILLATION
     Dosage: 100 MG
     Route: 048
     Dates: end: 20130702
  8. MAGMITT(MAGNESIUM OXIDE) [Concomitant]
     Indication: CONSTIPATION
     Dosage: 1500 MG
     Route: 048
     Dates: end: 20130702
  9. CELECOX(CELECOXIB) [Concomitant]
     Indication: PAIN
     Dosage: 200 MG
     Route: 048
     Dates: end: 20130702
  10. SORENTMIN(BROTIZOLAM) [Concomitant]
     Indication: INSOMNIA
     Route: 048
  11. ASPARA-CA(CALCIUM 1-ASPARTATE HYDRATE) [Concomitant]
     Indication: OSTEOPOROSIS
     Dosage: 400 MG
     Route: 048
     Dates: start: 20130626, end: 20130702
  12. EDIROL(ELDECALCITOL) [Concomitant]
     Indication: OSTEOPOROSIS
     Dosage: 0.75 MG
     Route: 048
     Dates: start: 20130626, end: 20130702
  13. TOCLASE(PENTOXYVERINE CITRATE) [Concomitant]
     Indication: COUGH
     Dosage: 60 MG
     Route: 048
     Dates: start: 20130627, end: 20130702
  14. NI (CODEINE PHOSPHATE HYDRATE) [Concomitant]
     Indication: COUGH
     Route: 048
  15. MERISLON(BETAHISTINE MESILATE) [Concomitant]
     Indication: DIZZINESS
     Dosage: 18 MG
     Route: 048
     Dates: start: 20130702, end: 20130706
  16. ASVERIN(TIPEPIDINE HIBENZATE) [Concomitant]
     Indication: COUGH
     Dosage: 60 MG
     Route: 048
     Dates: start: 20130702, end: 20130708
  17. LANSOPRAZOLE-OD(LANSOPRAZOLE) [Concomitant]
     Indication: GASTRITIS
     Dosage: 15 MG
     Route: 048
     Dates: start: 20130702, end: 20130708
  18. NI(TSUMURA DAIKENCHUTO EXTRACT GRANULES FOR ETHICAL USE) [Concomitant]
     Indication: CONSTIPATION
     Dosage: 15 MG
     Route: 048
     Dates: start: 20130702, end: 20130708
  19. CALONAL(ACETAMINOPHEN) [Concomitant]
     Indication: PAIN
     Dosage: 600 MG
     Route: 048
     Dates: start: 20130702, end: 20130708
  20. K- SUPPLY(POTASSIUM CHLORIDE) [Concomitant]
     Indication: HYPOKALAEMIA
     Dosage: 1200 MG
     Route: 048
     Dates: start: 20130706, end: 20130710
  21. ATARAX-P(HYDROXYZINE PAMOATE) [Concomitant]
     Indication: INSOMNIA
     Dosage: 25 MG
     Route: 048
     Dates: start: 20130709
  22. ZANTAC(RANITIDINE HYDROCHLORIDE) [Concomitant]
     Indication: GASTRITIS
     Dosage: 150 MG
     Route: 048
     Dates: start: 20130710
  23. REBAMIPIDE OD(REBAMIPIDE) [Concomitant]
     Indication: GASTRITIS
     Dosage: 300 MG
     Route: 048
     Dates: start: 20130710
  24. LAC-B(BIFIDOBACTERIUM) [Concomitant]
     Indication: DIARRHOEA
     Dosage: 3 G
     Route: 048
     Dates: start: 20130710
  25. NI (LOPERAMIDE HYDROCHLORIDE) [Concomitant]
     Indication: GASTRITIS
     Route: 048
     Dates: start: 20130710
  26. ADOFEED(FLURBIPROFEN) [Concomitant]
     Indication: BACK PAIN
     Dates: start: 20130630
  27. ELCITONIN INJECTION 20S (ELCATONIN) [Concomitant]
     Indication: OSTEOPOROSIS
     Route: 042
     Dates: start: 20130626
  28. BFLUID(MIXED AMINO ACID_CARBOHYDRATE_ELECTROLYTE_VITAMIN COMBINE) [Concomitant]
     Indication: DECREASED APPETITE
     Dosage: 1000 ML
     Dates: start: 20130626, end: 20130626
  29. BFLUID(MIXED AMINO ACID_CARBOHYDRATE_ELECTROLYTE_VITAMIN COMBINE) [Concomitant]
     Dosage: 1500 ML
     Dates: start: 20130628, end: 20130708
  30. PRIMPERAN(METOCLOPRAMIDE HYDROCHLORIDE) [Concomitant]
     Indication: NAUSEA
     Dosage: 10 MG
     Dates: start: 20130626, end: 20130626
  31. MEYLON(SODIUM BICARBONATE) [Concomitant]
     Indication: DIZZINESS
     Route: 042
     Dates: start: 20130628, end: 20130701
  32. OYPALOMIN 150(IOPAMIDOL) [Concomitant]
     Indication: SCAN WITH CONTRAST
     Route: 042
     Dates: start: 20130701, end: 20130701
  33. BILISCOPIN(IOTROXATE MEGLUMINE) [Concomitant]
     Indication: SCAN WITH CONTRAST
     Dates: start: 20130702, end: 20130702
  34. LASIX(FUROSEMIDE) [Concomitant]
     Indication: CARDIAC FAILURE
     Dosage: 20 MG
     Dates: start: 20130706, end: 20130708
  35. BFLUID(MIXED AMINO ACID_CARBOHYDRATE_ELECTROLYTE_VITAMIN COMBINE) [Concomitant]
     Indication: DECREASED APPETITE
     Dosage: 1500 ML
     Dates: start: 20130708, end: 20130708
  36. MUCOSOLVAN L [Concomitant]
     Indication: SPUTUM RETENTION
     Dosage: 45 MG
     Route: 048
     Dates: end: 20130702
  37. CODEINE / CODEINE PHOSPHATE HYDRATE [Concomitant]
     Indication: COUGH
     Route: 048
  38. TSUMURA DAIKENCHUTO EXTRACT GRANULES FOR ETHICAL USE / DAIKENCHUTO [Concomitant]
     Indication: CONSTIPATION
     Dosage: 15 MG
     Route: 048
     Dates: start: 20130702, end: 20130708
  39. URSO / URSODEOXYCHOLIC ACID [Concomitant]
     Indication: JAUNDICE
     Route: 048
     Dates: start: 20130702, end: 20130708
  40. SULPERAZON / SULBACTAM SODIUM_CEFOPERAZONE SODIUM [Concomitant]
     Indication: CHOLANGITIS
     Dosage: 2 G
     Route: 065
     Dates: start: 20130701

REACTIONS (13)
  - Drug-induced liver injury [Recovered/Resolved]
  - Drug eruption [Recovered/Resolved]
  - Cholelithiasis [Not Recovered/Not Resolved]
  - Hepatic cyst [Not Recovered/Not Resolved]
  - Dizziness [Not Recovered/Not Resolved]
  - Dizziness [Not Recovered/Not Resolved]
  - Dizziness [Not Recovered/Not Resolved]
  - Hyponatraemia [Not Recovered/Not Resolved]
  - Occult blood [Not Recovered/Not Resolved]
  - Anal skin tags [Not Recovered/Not Resolved]
  - Anal fissure [Not Recovered/Not Resolved]
  - Diarrhoea [Not Recovered/Not Resolved]
  - Eosinophil count increased [Not Recovered/Not Resolved]
